FAERS Safety Report 8459098 (Version 2)
Quarter: 2012Q4

REPORT INFORMATION
  Report Type: Report from Study
  Country: DE (occurrence: DE)
  Receive Date: 20120314
  Receipt Date: 20121001
  Transmission Date: 20130627
  Serious: Yes (Other)
  Sender: FDA-Public Use
  Company Number: DE-JNJFOC-20120304449

PATIENT
  Age: 45 Year
  Sex: Male
  Weight: 102 kg

DRUGS (1)
  1. STELARA [Suspect]
     Indication: PSORIASIS
     Dates: start: 20100118

REACTIONS (1)
  - Diabetes mellitus [Unknown]
